FAERS Safety Report 8382916-7 (Version None)
Quarter: 2012Q2

REPORT INFORMATION
  Report Type: 
  Country: None (occurrence: None)
  Receive Date: 20120524
  Receipt Date: 20120510
  Transmission Date: 20120825
  Serious: Yes (Other)
  Sender: FDA-Public Use
  Company Number: TH-JNJFOC-20120512007

PATIENT

DRUGS (18)
  1. METHOTREXATE [Suspect]
     Dosage: WEEKLY; CURRENT PROTOCOL; CONTINUATION PHASE
     Route: 065
  2. CYTOXAN [Suspect]
     Indication: ACUTE LYMPHOCYTIC LEUKAEMIA
     Dosage: ON DAYS 22, 29, 32, PREVIOUS PROTOCOL, REMISSION INDUCTION
     Route: 065
  3. COTRIM [Concomitant]
     Indication: ANTIFUNGAL PROPHYLAXIS
     Dosage: FOR 3 CONSECUTIVE D/WK FROM D 15 OF REMISSION INDUCTION TO 12 WKS AFTER COMPL. OF ALL CHEMOTHERAPY
     Route: 065
  4. VINCRISTINE [Suspect]
     Indication: ACUTE LYMPHOCYTIC LEUKAEMIA
     Dosage: ON DAYS 1, 8, 15, 22, PREVIOUS PROTOCOL, REMISSION INDUCTION
     Route: 065
  5. MERCAPTOPURINE [Suspect]
     Dosage: DAYS 22-35, CURRENT PROTOCOL, REMISSION-INDUCTION
     Route: 065
  6. DOXORUBICIN HCL [Suspect]
     Indication: ACUTE LYMPHOCYTIC LEUKAEMIA
     Dosage: ON DAYS 1, 8 AND EXTRA ON DAY 15, PREVIOUS PROTOCOL, REMISSION INDUCTION
     Route: 042
  7. DEXAMETHASONE [Suspect]
     Dosage: LOW RISK 8 MG/M2, 5 DAYS, STABLE/HIGH RISK 12 MG/M2, EVERY 4 WEEKS, CURRENT PROTOCOL, CONTINUATION
     Route: 065
  8. LEUCOVORIN CALCIUM [Concomitant]
     Route: 042
  9. METHOTREXATE [Suspect]
     Dosage: WEEKLY; PREVIOUS PROTOCOL; CONTINUATION PHASE
     Route: 065
  10. RADIOTHERAPY [Suspect]
     Indication: ACUTE LYMPHOCYTIC LEUKAEMIA
     Route: 065
  11. ELSPAR [Suspect]
     Indication: ACUTE LYMPHOCYTIC LEUKAEMIA
     Dosage: 10,000 U/M2 OR 25, 000U/M2 ON DAYS 2,4,6,8,10,12 PREVIOUS PROTOCOL, REMISSION INDUCTION
     Route: 030
  12. ETOPOSIDE [Suspect]
     Indication: ACUTE LYMPHOCYTIC LEUKAEMIA
     Dosage: ON DAYS 22, 29, 32, PREVIOUS PROTOCOL, REMISSION INDUCTION
     Route: 065
  13. METHOTREXATE [Suspect]
     Dosage: L:1.5 G/M2, S: 2G/M2, H: 5 G/M2 ON DAYS 1, 8, PREVIOUS PROTOCOL, CONSOLIDATION PHASE
     Route: 065
  14. MERCAPTOPURINE [Suspect]
     Indication: ACUTE LYMPHOCYTIC LEUKAEMIA
     Dosage: 50-70 MG/M2, DAILY, CURRENT PROTOCOL, CONTINUATION PHASE
     Route: 065
  15. CYTARABINE [Suspect]
     Indication: ACUTE LYMPHOCYTIC LEUKAEMIA
     Dosage: ON DAYS 22, 29, 32, PREVIOUS PROTOCOL, REMISSION INDUCTION
     Route: 065
  16. METHOTREXATE [Suspect]
     Indication: ACUTE LYMPHOCYTIC LEUKAEMIA
     Dosage: AGE DEPENDENT DOSE ON DAYS 1, 22 (EXTRA 8, 15), PREVIOUS PROTOCOL, REMISSION INDUCTION
     Route: 037
  17. PREDNISONE [Suspect]
     Indication: ACUTE LYMPHOCYTIC LEUKAEMIA
     Dosage: DAYS 1-29, PREVIOUS PROTOCOL, REMISSION INDUCTION
     Route: 065
  18. DEXAMETHASONE [Suspect]
     Indication: ACUTE LYMPHOCYTIC LEUKAEMIA
     Dosage: DAYS 1-8, 15-22, CURRENT PROTOCOL, REMISSION-INDUCTION
     Route: 065

REACTIONS (2)
  - DIABETES MELLITUS [None]
  - OFF LABEL USE [None]
